FAERS Safety Report 8428071-6 (Version None)
Quarter: 2012Q2

REPORT INFORMATION
  Report Type: 
  Country: None (occurrence: None)
  Receive Date: 20120611
  Receipt Date: 20120601
  Transmission Date: 20120825
  Serious: Yes (Other)
  Sender: FDA-Public Use
  Company Number: GB-ASTRAZENECA-2012SE37876

PATIENT
  Age: 78 Year
  Sex: Male
  Weight: 102 kg

DRUGS (10)
  1. DICLOFENAC SODIUM [Concomitant]
     Dates: start: 20120201
  2. ALBUTEROL [Concomitant]
     Dates: start: 20120201
  3. SIMVASTATIN [Concomitant]
     Dates: start: 20120201
  4. QUININE SULFATE [Concomitant]
     Dates: start: 20120201
  5. OMEPRAZOLE [Suspect]
     Route: 048
     Dates: start: 20120201
  6. NIFEDIPINE [Concomitant]
     Dates: start: 20120421
  7. FELODIPINE [Concomitant]
     Dates: start: 20120201
  8. BENDROFLUMETHIAZIDE [Concomitant]
     Dates: start: 20120201
  9. RANITIDINE [Concomitant]
     Dates: start: 20120518
  10. VALSARTAN [Concomitant]
     Dates: start: 20120201

REACTIONS (2)
  - DIZZINESS [None]
  - PARAESTHESIA [None]
